FAERS Safety Report 23438563 (Version 1)
Quarter: 2024Q1

REPORT INFORMATION
  Report Type: Spontaneous
  Country: US (occurrence: US)
  Receive Date: 20240124
  Receipt Date: 20240124
  Transmission Date: 20240410
  Serious: No
  Sender: FDA-Public Use
  Company Number: US-MYLANLABS-2024M1003111

PATIENT
  Age: 75 Year
  Sex: Female
  Weight: 46.26 kg

DRUGS (1)
  1. TYRVAYA [Suspect]
     Active Substance: VARENICLINE TARTRATE
     Indication: Product used for unknown indication
     Dosage: 0.03 MILLIGRAM
     Route: 045
     Dates: start: 202307, end: 20231215

REACTIONS (2)
  - Dacryostenosis acquired [Unknown]
  - Hordeolum [Unknown]

NARRATIVE: CASE EVENT DATE: 20230701
